FAERS Safety Report 9354572 (Version 3)
Quarter: 2014Q1

REPORT INFORMATION
  Report Type: Report from Study
  Country: FR (occurrence: FR)
  Receive Date: 20130618
  Receipt Date: 20140325
  Transmission Date: 20141002
  Serious: Yes (Other)
  Sender: FDA-Public Use
  Company Number: FR-UCBSA-088649

PATIENT
  Age: 49 Year
  Sex: Female
  Weight: 48 kg

DRUGS (2)
  1. CIMZIA [Suspect]
     Indication: RHEUMATOID ARTHRITIS
     Route: 058
     Dates: start: 20130301, end: 20130329
  2. CORTANCYL [Suspect]
     Indication: RHEUMATOID ARTHRITIS
     Dates: start: 20130221, end: 20130325

REACTIONS (4)
  - Tongue haemorrhage [Recovered/Resolved]
  - Rheumatoid arthritis [Recovered/Resolved]
  - Acne [Recovered/Resolved]
  - Swollen tongue [Recovered/Resolved]
